FAERS Safety Report 9447886 (Version 1)
Quarter: 2013Q3

REPORT INFORMATION
  Report Type: Spontaneous
  Country: FR (occurrence: None)
  Receive Date: 20130805
  Receipt Date: 20130805
  Transmission Date: 20140515
  Serious: Yes (Other)
  Sender: FDA-Public Use
  Company Number: FR-ALKEM-000115

PATIENT
  Age: 32 Year
  Sex: Female
  Weight: 60 kg

DRUGS (2)
  1. METFORMINE [Suspect]
     Indication: PRODUCT USED FOR UNKNOWN INDICATION
  2. INSULIN [Concomitant]

REACTIONS (10)
  - Premature rupture of membranes [None]
  - Abortion spontaneous [None]
  - Exposure during pregnancy [None]
  - Myalgia [None]
  - Pregnancy [None]
  - Gestational diabetes [None]
  - Shortened cervix [None]
  - Amniotic cavity infection [None]
  - Radiculitis [None]
  - Oligohydramnios [None]
